FAERS Safety Report 12887425 (Version 9)
Quarter: 2017Q2

REPORT INFORMATION
  Report Type: Report from Study
  Country: BR (occurrence: BR)
  Receive Date: 20161026
  Receipt Date: 20170622
  Transmission Date: 20170830
  Serious: Yes (Hospitalization, Other)
  Sender: FDA-Public Use
  Company Number: PHHY2016BR143122

PATIENT
  Sex: Female
  Weight: 52 kg

DRUGS (4)
  1. SANDOSTATIN LAR DEPOT [Suspect]
     Active Substance: OCTREOTIDE ACETATE
     Indication: NEUROENDOCRINE TUMOUR
     Dosage: 30 MG, QMO (ONCE A MONTH)
     Route: 030
     Dates: start: 20150417
  2. SANDOSTATIN LAR DEPOT [Suspect]
     Active Substance: OCTREOTIDE ACETATE
     Indication: GASTRIC CANCER
     Dosage: 20 MG, UNK
     Route: 065
  3. SANDOSTATIN LAR DEPOT [Suspect]
     Active Substance: OCTREOTIDE ACETATE
     Dosage: 30 MG, QMO
     Route: 030
  4. SANDOSTATIN LAR DEPOT [Suspect]
     Active Substance: OCTREOTIDE ACETATE
     Indication: BENIGN OVARIAN TUMOUR
     Dosage: 20 MG, UNK
     Route: 065
     Dates: start: 20150417

REACTIONS (14)
  - Liver disorder [Unknown]
  - Incorrect product storage [Unknown]
  - Product use in unapproved indication [Unknown]
  - Confusional state [Unknown]
  - Malignant neoplasm progression [Unknown]
  - Pain [Recovering/Resolving]
  - Metastases to diaphragm [Unknown]
  - Weight increased [Unknown]
  - Gait disturbance [Unknown]
  - Abdominal pain upper [Unknown]
  - Hepatic neoplasm [Unknown]
  - Metastases to liver [Unknown]
  - Weight decreased [Unknown]
  - Asthenia [Unknown]
